FAERS Safety Report 9672782 (Version 2)
Quarter: 2014Q1

REPORT INFORMATION
  Report Type: Spontaneous
  Country: US (occurrence: US)
  Receive Date: 20131106
  Receipt Date: 20140203
  Transmission Date: 20141002
  Serious: No
  Sender: FDA-Public Use
  Company Number: US-AMGEN-USASP2013068885

PATIENT
  Age: 64 Year
  Sex: Female
  Weight: 90.7 kg

DRUGS (8)
  1. ENBREL [Suspect]
     Indication: RHEUMATOID ARTHRITIS
     Dosage: 50 MG, QWK
     Route: 065
     Dates: start: 20130327
  2. PLAQUENIL                          /00072602/ [Concomitant]
     Dosage: 400 MG, QD
     Route: 048
  3. CELEBREX [Concomitant]
     Indication: OSTEOARTHRITIS
     Dosage: 200 MG, BID
     Route: 048
     Dates: start: 20121005
  4. OMEPRAZOLE [Concomitant]
     Indication: GASTROOESOPHAGEAL REFLUX DISEASE
     Dosage: 20 MG, BID
     Route: 048
  5. VENLAFAXINE [Concomitant]
     Indication: DEPRESSION
     Dosage: 150 UNK, QD
     Route: 048
  6. TRAZODONE [Concomitant]
     Indication: DEPRESSION
     Dosage: UNK
     Route: 048
  7. SULFASALAZINE [Concomitant]
     Indication: RHEUMATOID ARTHRITIS
     Dosage: 10 UNK, BID
     Route: 048
     Dates: start: 201206
  8. RESTASIS [Concomitant]
     Indication: SJOGREN^S SYNDROME
     Dosage: UNK

REACTIONS (6)
  - Local swelling [Recovered/Resolved]
  - Hypoaesthesia [Recovered/Resolved]
  - Full blood count abnormal [Recovered/Resolved]
  - Fatigue [Not Recovered/Not Resolved]
  - Swelling [Not Recovered/Not Resolved]
  - Injection site reaction [Recovered/Resolved]
